FAERS Safety Report 8914624 (Version 1)
Quarter: 2012Q4

REPORT INFORMATION
  Report Type: 
  Country: US (occurrence: US)
  Receive Date: 20121119
  Receipt Date: 20121119
  Transmission Date: 20130627
  Serious: Yes (Hospitalization, Other)
  Sender: FDA-Public Use
  Company Number: US-NOVOPROD-363956

PATIENT
  Sex: Female

DRUGS (1)
  1. LEVEMIR FLEXPEN [Suspect]
     Indication: DIABETES MELLITUS
     Dosage: 50 U qd (20U am, 30Upm)
     Route: 058

REACTIONS (3)
  - Coma [Recovered/Resolved]
  - Dizziness [Unknown]
  - Hypersomnia [Unknown]
